FAERS Safety Report 8828698 (Version 1)
Quarter: 2012Q4

REPORT INFORMATION
  Report Type: 
  Country: CA (occurrence: CA)
  Receive Date: 20121008
  Receipt Date: 20121008
  Transmission Date: 20130627
  Serious: Yes (Other)
  Sender: FDA-Public Use
  Company Number: CA-UCBSA-068227

PATIENT
  Age: 24 Year
  Sex: Female

DRUGS (3)
  1. KEPPRA [Suspect]
     Indication: PARTIAL SEIZURES
     Route: 048
     Dates: start: 201203
  2. KEPPRA [Suspect]
     Indication: PARTIAL SEIZURES
     Dosage: 6AM, 2PM and 10PM
     Route: 048
     Dates: start: 2012
  3. LAMOTRIGINE [Suspect]
     Indication: PARTIAL SEIZURES

REACTIONS (2)
  - Convulsion [Recovering/Resolving]
  - Cognitive disorder [Unknown]
